FAERS Safety Report 7206477-0 (Version None)
Quarter: 2011Q1

REPORT INFORMATION
  Report Type: 
  Country: None (occurrence: None)
  Receive Date: 20110103
  Receipt Date: 20101223
  Transmission Date: 20110831
  Serious: Yes (Hospitalization)
  Sender: FDA-Public Use
  Company Number: CH-PFIZER INC-2010139662

PATIENT
  Age: 72 Year
  Sex: Female

DRUGS (5)
  1. LYRICA [Suspect]
     Dosage: 75 MG, 1X/DAY
     Route: 048
     Dates: start: 20050901, end: 20050922
  2. ATENOLOL [Concomitant]
     Dosage: 50 MG, 1X/DAY
     Route: 048
     Dates: start: 19990101
  3. OXYGESIC [Concomitant]
     Dosage: 5 MG, 2X/DAY
     Route: 048
     Dates: start: 20050110
  4. DYNACIL COMP [Concomitant]
     Dosage: UNK DF, 1X/DAY
     Route: 048
     Dates: start: 19990401
  5. AMITRIPTYLINE HCL [Concomitant]
     Dosage: 75 MG, 1X/DAY
     Route: 048
     Dates: start: 20001001

REACTIONS (3)
  - PELVIC FRACTURE [None]
  - FALL [None]
  - HYPOTENSION [None]
